FAERS Safety Report 20393975 (Version 1)
Quarter: 2022Q1

REPORT INFORMATION
  Report Type: Report from Study
  Country: US (occurrence: US)
  Receive Date: 20220129
  Receipt Date: 20220129
  Transmission Date: 20220423
  Serious: Yes (Other)
  Sender: FDA-Public Use
  Company Number: US-ABBVIE-22K-163-4253764-00

PATIENT
  Sex: Female

DRUGS (1)
  1. IMBRUVICA [Suspect]
     Active Substance: IBRUTINIB
     Indication: Waldenstrom^s macroglobulinaemia
     Route: 048
     Dates: start: 20210313, end: 202201

REACTIONS (3)
  - Gastrointestinal disorder [Not Recovered/Not Resolved]
  - Dysphonia [Unknown]
  - Illness [Unknown]

NARRATIVE: CASE EVENT DATE: 20210101
